FAERS Safety Report 9325258 (Version 3)
Quarter: 2014Q1

REPORT INFORMATION
  Report Type: Spontaneous
  Country: MX (occurrence: MX)
  Receive Date: 20130604
  Receipt Date: 20140203
  Transmission Date: 20141002
  Serious: Yes (Death, Hospitalization)
  Sender: FDA-Public Use
  Company Number: MX-ROCHE-1224111

PATIENT
  Age: 65 Year
  Sex: Female

DRUGS (10)
  1. PERJETA [Suspect]
     Indication: BREAST CANCER METASTATIC
     Route: 042
     Dates: start: 20130415, end: 20130415
  2. TRASTUZUMAB [Concomitant]
     Indication: BREAST CANCER METASTATIC
     Route: 042
     Dates: start: 20120725
  3. DENOSUMAB [Concomitant]
     Route: 042
     Dates: start: 20120806
  4. PANTAZOL [Concomitant]
     Route: 065
  5. PANKREOFLAT [Concomitant]
     Route: 048
  6. METICORTEN [Concomitant]
     Route: 065
  7. EUTIROX [Concomitant]
     Route: 048
  8. CORDARONE [Concomitant]
  9. DILATREND [Concomitant]
  10. ASPIRIN [Concomitant]
     Route: 048

REACTIONS (10)
  - Cerebrovascular accident [Fatal]
  - Diarrhoea [Recovering/Resolving]
  - Ileus paralytic [Recovering/Resolving]
  - Sepsis [Unknown]
  - Stomatitis [Unknown]
  - Blood potassium decreased [Unknown]
  - Intestinal ulcer [Unknown]
  - Pseudomembranous colitis [Unknown]
  - Pneumonia [Unknown]
  - Mucosal inflammation [Unknown]
